FAERS Safety Report 4761827-X (Version None)
Quarter: 2005Q3

REPORT INFORMATION
  Report Type: 
  Country: None (occurrence: None)
  Receive Date: 20050906
  Receipt Date: 20050826
  Transmission Date: 20060218
  Serious: Yes (Hospitalization)
  Sender: FDA-Public Use
  Company Number: FR-ROCHE-415794

PATIENT
  Age: 78 Year
  Sex: Male
  Weight: 80 kg

DRUGS (12)
  1. CLONAZEPAM [Suspect]
     Dosage: ALSO REPORTED AS 3-4 DROPS PER DAY.
     Route: 048
     Dates: start: 20050706, end: 20050709
  2. PLAVIX [Suspect]
     Route: 048
  3. ZOCOR [Suspect]
     Route: 048
  4. OMEPRAZOLE [Suspect]
     Indication: DRUG USE FOR UNKNOWN INDICATION
     Route: 048
  5. KARDEGIC [Suspect]
     Route: 048
  6. ALLOPURINOL [Suspect]
     Indication: GOUT
     Route: 048
  7. AMLOR [Concomitant]
     Indication: HYPERTENSION
     Route: 048
  8. PRAXILENE [Concomitant]
  9. CORVASAL [Concomitant]
  10. ODRIK [Concomitant]
  11. LASIX [Concomitant]
  12. DETENSIEL [Concomitant]

REACTIONS (3)
  - CHILLS [None]
  - FLUSHING [None]
  - HYPERHIDROSIS [None]
